FAERS Safety Report 10457861 (Version 1)
Quarter: 2014Q3

REPORT INFORMATION
  Report Type: Spontaneous
  Country: JP (occurrence: JP)
  Receive Date: 20140916
  Receipt Date: 20140916
  Transmission Date: 20150326
  Serious: Yes (Death)
  Sender: FDA-Public Use
  Company Number: JP-GLAXOSMITHKLINE-B1032740A

PATIENT
  Sex: Male

DRUGS (1)
  1. AVOLVE [Suspect]
     Active Substance: DUTASTERIDE
     Indication: DYSURIA
     Dosage: .5MG PER DAY
     Dates: start: 2012, end: 2014

REACTIONS (5)
  - Metastases to lung [Unknown]
  - Metastases to bone [Unknown]
  - Liver disorder [Fatal]
  - Metastases to liver [Unknown]
  - Hepatic failure [Fatal]

NARRATIVE: CASE EVENT DATE: 201408
